FAERS Safety Report 5593105-3 (Version None)
Quarter: 2008Q1

REPORT INFORMATION
  Report Type: 
  Country: None (occurrence: None)
  Receive Date: 20080114
  Receipt Date: 20080114
  Transmission Date: 20080703
  Serious: Yes (Hospitalization)
  Sender: FDA-Public Use
  Company Number: None

PATIENT
  Age: 80 Year
  Sex: Male
  Weight: 93.89 kg

DRUGS (2)
  1. DIVALPROEX SODIUM [Suspect]
     Indication: CONVULSION
     Dosage: 500MG EVERY DAY PO
     Route: 048
     Dates: start: 20071225, end: 20080108
  2. QUETIAPINE FUMARATE 50MG TAB, UD [Suspect]
     Dosage: 50MG EVERY DAY PO
     Route: 048
     Dates: start: 20071225, end: 20080108

REACTIONS (5)
  - CONFUSIONAL STATE [None]
  - DISORIENTATION [None]
  - LETHARGY [None]
  - MENTAL STATUS CHANGES [None]
  - SOMNOLENCE [None]
